FAERS Safety Report 6316895-0 (Version None)
Quarter: 2009Q3

REPORT INFORMATION
  Report Type: 
  Country: None (occurrence: None)
  Receive Date: 20090820
  Receipt Date: 20090810
  Transmission Date: 20100115
  Serious: Yes (Hospitalization, Other)
  Sender: FDA-Public Use
  Company Number: TR-ELI_LILLY_AND_COMPANY-TR200908001874

PATIENT
  Sex: Female

DRUGS (4)
  1. HUMULIN R [Suspect]
     Indication: GESTATIONAL DIABETES
     Dosage: UNK UNK,
     Route: 064
     Dates: start: 20090101, end: 20090601
  2. HUMULIN R [Suspect]
     Dosage: 10 IU, DAILY (1/D)
     Route: 064
     Dates: start: 20090101, end: 20090601
  3. HUMULIN R [Suspect]
     Dosage: 8 IU, EACH EVENING
     Route: 064
     Dates: start: 20090101, end: 20090601
  4. HUMULIN N [Suspect]
     Indication: GESTATIONAL DIABETES
     Dosage: UNK UNK,
     Route: 064
     Dates: start: 20090101, end: 20090601

REACTIONS (2)
  - DRUG EXPOSURE DURING PREGNANCY [None]
  - PREMATURE BABY [None]
